FAERS Safety Report 16289100 (Version 2)
Quarter: 2019Q2

REPORT INFORMATION
  Report Type: Spontaneous
  Country: BE (occurrence: BE)
  Receive Date: 20190509
  Receipt Date: 20190515
  Transmission Date: 20190711
  Serious: Yes (Hospitalization, Other)
  Sender: FDA-Public Use
  Company Number: BE-GLAXOSMITHKLINE-BE2019GSK079868

PATIENT
  Age: 57 Year
  Sex: Female

DRUGS (4)
  1. NIQUITIN [Suspect]
     Active Substance: NICOTINE
     Dosage: 14 MG, QD
  2. WELLBUTRIN XL [Suspect]
     Active Substance: BUPROPION HYDROCHLORIDE
     Indication: SMOKING CESSATION THERAPY
     Dosage: 150 MG, QD
     Dates: start: 20190303
  3. NIQUITIN [Suspect]
     Active Substance: NICOTINE
     Indication: SMOKING CESSATION THERAPY
     Dosage: 21 MG, QD
     Dates: start: 20190303, end: 20190502
  4. NIQUITIN [Suspect]
     Active Substance: NICOTINE
     Dosage: 7 MG, QD

REACTIONS (7)
  - Dizziness [Unknown]
  - Off label use [Unknown]
  - Shock symptom [Unknown]
  - Anxiety [Unknown]
  - Product use in unapproved indication [Unknown]
  - Paraesthesia [Unknown]
  - Nausea [Unknown]

NARRATIVE: CASE EVENT DATE: 20190317
